FAERS Safety Report 17892256 (Version 1)
Quarter: 2020Q2

REPORT INFORMATION
  Report Type: Spontaneous
  Country: HU (occurrence: HU)
  Receive Date: 20200612
  Receipt Date: 20200612
  Transmission Date: 20200714
  Serious: Yes (Other)
  Sender: FDA-Public Use
  Company Number: HU-TOLMAR, INC.-20HU021639

PATIENT
  Age: 75 Year
  Sex: Male

DRUGS (2)
  1. ELIGARD [Suspect]
     Active Substance: LEUPROLIDE ACETATE
     Indication: PROSTATE CANCER
     Dosage: UNK
     Route: 065
  2. VISMODEGIB. [Suspect]
     Active Substance: VISMODEGIB
     Indication: BASAL CELL CARCINOMA
     Route: 065

REACTIONS (7)
  - Drug resistance [Unknown]
  - Taste disorder [Unknown]
  - Drug ineffective [Unknown]
  - Muscle spasms [Unknown]
  - Basal cell carcinoma [Recovered/Resolved]
  - Alopecia [Unknown]
  - Decreased appetite [Unknown]
